FAERS Safety Report 4337006-7 (Version None)
Quarter: 2004Q2

REPORT INFORMATION
  Report Type: 
  Country: None (occurrence: None)
  Receive Date: 20040408
  Receipt Date: 20040322
  Transmission Date: 20050107
  Serious: Yes (Other)
  Sender: FDA-Public Use
  Company Number: PHEH2004US01929

PATIENT
  Age: 35 Year
  Sex: Female
  Weight: 72.5755 kg

DRUGS (2)
  1. VISUDYNE [Suspect]
     Indication: CHOROIDAL NEOVASCULARISATION
     Dosage: 11 MG ONCE IV
     Route: 042
     Dates: start: 20031024, end: 20031024
  2. VISUDYNE [Suspect]
     Indication: CHOROIDAL NEOVASCULARISATION
     Dosage: 10 MG ONCE IV
     Route: 042
     Dates: start: 20031208, end: 20031208

REACTIONS (3)
  - RETINAL HAEMORRHAGE [None]
  - RETINAL PIGMENT EPITHELIOPATHY [None]
  - VISUAL ACUITY REDUCED [None]
